FAERS Safety Report 13678328 (Version 1)
Quarter: 2017Q2

REPORT INFORMATION
  Report Type: Spontaneous
  Country: US (occurrence: US)
  Receive Date: 20170622
  Receipt Date: 20170622
  Transmission Date: 20170830
  Serious: No
  Sender: FDA-Public Use
  Company Number: US-BAUSCH-BL-2017-000701

PATIENT
  Sex: Male

DRUGS (2)
  1. PROVENGE [Suspect]
     Active Substance: SIPULEUCEL-T
     Indication: PROSTATE CANCER
     Dosage: FIRST TREATMENT
     Route: 042
  2. PROVENGE [Suspect]
     Active Substance: SIPULEUCEL-T
     Dosage: SECOND TREATMENT
     Route: 042

REACTIONS (1)
  - Myalgia [Unknown]
